FAERS Safety Report 21670008 (Version 1)
Quarter: 2022Q4

REPORT INFORMATION
  Report Type: Spontaneous
  Country: US (occurrence: None)
  Receive Date: 20221201
  Receipt Date: 20221201
  Transmission Date: 20230113
  Serious: Yes (Other)
  Sender: FDA-Public Use
  Company Number: None

PATIENT
  Age: 31 Year
  Sex: Female
  Weight: 113.4 kg

DRUGS (2)
  1. VILAZODONE [Suspect]
     Active Substance: VILAZODONE
     Indication: Major depression
     Dosage: 40MG QD PO?UNIT TABLET
     Dates: start: 20221017
  2. VILAZODONE [Suspect]
     Active Substance: VILAZODONE
     Indication: Generalised anxiety disorder

REACTIONS (5)
  - Crying [None]
  - Anxiety [None]
  - Electric shock sensation [None]
  - Therapeutic product effect decreased [None]
  - Product substitution issue [None]

NARRATIVE: CASE EVENT DATE: 20221130
